FAERS Safety Report 8537461-2 (Version None)
Quarter: 2012Q3

REPORT INFORMATION
  Report Type: 
  Country: None (occurrence: None)
  Receive Date: 20120725
  Receipt Date: 20120717
  Transmission Date: 20120928
  Serious: No
  Sender: FDA-Public Use
  Company Number: US-B.I. PHARMACEUTICALS,INC./RIDGEFIELD-2012-BP-13658BP

PATIENT
  Sex: Female
  Weight: 70.76 kg

DRUGS (6)
  1. ATROVENT [Concomitant]
     Dates: start: 20010101
  2. ADVAIR DISKUS 100/50 [Concomitant]
     Dates: start: 20081126, end: 20120706
  3. DUONEB [Concomitant]
     Dates: start: 20050610
  4. SPIRIVA [Suspect]
     Indication: CHRONIC OBSTRUCTIVE PULMONARY DISEASE
     Dosage: 18 MCG
     Route: 055
     Dates: start: 20120118, end: 20120125
  5. SPIRIVA [Suspect]
     Dosage: 18 MCG
     Route: 055
     Dates: start: 20120401, end: 20120401
  6. SPIRIVA [Suspect]
     Dosage: 18 MCG
     Route: 055
     Dates: start: 20120501, end: 20120501

REACTIONS (8)
  - FEELING JITTERY [None]
  - RASH [None]
  - NAUSEA [None]
  - VISION BLURRED [None]
  - URINARY TRACT INFECTION [None]
  - ABDOMINAL PAIN [None]
  - HEADACHE [None]
  - EPISTAXIS [None]
